FAERS Safety Report 19984407 (Version 4)
Quarter: 2021Q4

REPORT INFORMATION
  Report Type: Spontaneous
  Country: US (occurrence: US)
  Receive Date: 20211021
  Receipt Date: 20211203
  Transmission Date: 20220303
  Serious: Yes (Other)
  Sender: FDA-Public Use
  Company Number: US-PFIZER INC-202101390878

PATIENT
  Age: 75 Year
  Sex: Female

DRUGS (2)
  1. RUXIENCE [Suspect]
     Active Substance: RITUXIMAB-PVVR
     Dosage: UNK
  2. BENADRYL [Concomitant]
     Active Substance: DIPHENHYDRAMINE HYDROCHLORIDE
     Dosage: 100 MG

REACTIONS (5)
  - Haemorrhage [Unknown]
  - Vasculitis [Unknown]
  - Granuloma [Unknown]
  - Nervousness [Unknown]
  - Drug hypersensitivity [Unknown]
